APPROVED DRUG PRODUCT: GYNE-LOTRIMIN
Active Ingredient: CLOTRIMAZOLE
Strength: 100MG
Dosage Form/Route: TABLET;VAGINAL
Application: N017717 | Product #002
Applicant: BAYER HEALTHCARE LLC
Approved: Nov 30, 1990 | RLD: Yes | RS: No | Type: DISCN